FAERS Safety Report 11277211 (Version 1)
Quarter: 2015Q3

REPORT INFORMATION
  Report Type: Spontaneous
  Country: DE (occurrence: DE)
  Receive Date: 20150716
  Receipt Date: 20150716
  Transmission Date: 20151125
  Serious: Yes (Other)
  Sender: FDA-Public Use
  Company Number: DE-MYLANLABS-2015M1022558

PATIENT

DRUGS (4)
  1. IBUFLAM                            /00109201/ [Concomitant]
     Indication: BONE PAIN
     Dosage: 600 MG, PRN
     Route: 048
     Dates: start: 2010
  2. VALSARTAN DURA 160 MG FILMTABLETTEN [Suspect]
     Active Substance: VALSARTAN
     Dosage: 0.5 DF, QD (WITH BREAKLINE)
     Route: 048
  3. VALSARTAN DURA 160 MG FILMTABLETTEN [Suspect]
     Active Substance: VALSARTAN
     Indication: HYPERTENSION
     Dosage: HALF A TABLET, QD (NO BREAKLINE)
     Route: 048
     Dates: start: 201405
  4. L-THYROX HEXAL 112 [Concomitant]
     Active Substance: LEVOTHYROXINE SODIUM
     Indication: HYPOTHYROIDISM
     Dosage: 75 ?G, QD
     Route: 048

REACTIONS (6)
  - Blood pressure inadequately controlled [Recovered/Resolved]
  - Dry eye [Recovered/Resolved]
  - Mental disorder [Unknown]
  - Dizziness [Recovered/Resolved]
  - Limb discomfort [Recovered/Resolved]
  - Headache [Recovered/Resolved]

NARRATIVE: CASE EVENT DATE: 201411
